FAERS Safety Report 11679488 (Version 2)
Quarter: 2015Q4

REPORT INFORMATION
  Report Type: Spontaneous
  Country: US (occurrence: US)
  Receive Date: 20151027
  Receipt Date: 20151104
  Transmission Date: 20160304
  Serious: No
  Sender: FDA-Public Use
  Company Number: US-ELI_LILLY_AND_COMPANY-US201011004483

PATIENT
  Age: 68 Year
  Sex: Female

DRUGS (2)
  1. FORTEO [Suspect]
     Active Substance: TERIPARATIDE
     Indication: OSTEOPOROSIS
     Dosage: 20 UG, DAILY (1/D)
     Dates: start: 201009
  2. FORTEO [Suspect]
     Active Substance: TERIPARATIDE
     Dosage: 20 UG, DAILY (1/D)

REACTIONS (10)
  - Nasal congestion [Unknown]
  - Pain of skin [Unknown]
  - Rash pruritic [Not Recovered/Not Resolved]
  - Cough [Not Recovered/Not Resolved]
  - Onychomycosis [Unknown]
  - Malaise [Unknown]
  - Pruritus [Unknown]
  - Rash [Unknown]
  - Arthralgia [Not Recovered/Not Resolved]
  - Flank pain [Unknown]

NARRATIVE: CASE EVENT DATE: 20101110
